FAERS Safety Report 8295727-8 (Version None)
Quarter: 2012Q2

REPORT INFORMATION
  Report Type: 
  Country: None (occurrence: None)
  Receive Date: 20120416
  Receipt Date: 20120329
  Transmission Date: 20120825
  Serious: Yes (Life-Threatening, Hospitalization)
  Sender: FDA-Public Use
  Company Number: 214893

PATIENT
  Age: 41 Year
  Sex: Female
  Weight: 38.2 kg

DRUGS (5)
  1. INNOHEP [Suspect]
     Indication: DEEP VEIN THROMBOSIS
     Dosage: 8000 IU (8000 IU,1 IN 1 D),SUBCUTANEOUS ; 8000 IU (8000 IU,1 IN 1 D),SUBCUTANEOUS
     Route: 058
     Dates: start: 20100831, end: 20110103
  2. INNOHEP [Suspect]
     Indication: DEEP VEIN THROMBOSIS
     Dosage: 8000 IU (8000 IU,1 IN 1 D),SUBCUTANEOUS ; 8000 IU (8000 IU,1 IN 1 D),SUBCUTANEOUS
     Route: 058
     Dates: start: 20110108
  3. PACLITAXEL [Concomitant]
  4. CARBOPLATIN [Concomitant]
  5. C-PINK (HIERROQUICK) [Concomitant]

REACTIONS (8)
  - GASTRITIS [None]
  - DUODENITIS HAEMORRHAGIC [None]
  - ASTHENIA [None]
  - WHITE BLOOD CELL COUNT INCREASED [None]
  - GASTROINTESTINAL HAEMORRHAGE [None]
  - ABDOMINAL PAIN [None]
  - PROTHROMBIN TIME PROLONGED [None]
  - ANAEMIA [None]
